FAERS Safety Report 22374159 (Version 3)
Quarter: 2023Q2

REPORT INFORMATION
  Report Type: Spontaneous
  Country: DE (occurrence: DE)
  Receive Date: 20230526
  Receipt Date: 20230626
  Transmission Date: 20230721
  Serious: Yes (Hospitalization, Other)
  Sender: FDA-Public Use
  Company Number: DE-DSJP-DSE-2023-120417

PATIENT
  Age: 86 Year
  Sex: Male

DRUGS (1)
  1. EDOXABAN TOSYLATE [Suspect]
     Active Substance: EDOXABAN TOSYLATE
     Indication: Atrial fibrillation
     Dosage: 30 MG, QD
     Route: 065
     Dates: end: 20230521

REACTIONS (10)
  - Cardiac cirrhosis [Unknown]
  - Fall [Unknown]
  - Skin laceration [Not Recovered/Not Resolved]
  - General physical health deterioration [Recovered/Resolved]
  - Thrombocytopenia [Unknown]
  - Haemorrhage [Recovered/Resolved]
  - Pancytopenia [Unknown]
  - Prothrombin time abnormal [Unknown]
  - Dehydration [Unknown]
  - Off label use [Recovered/Resolved]

NARRATIVE: CASE EVENT DATE: 20230501
